FAERS Safety Report 8048634-X (Version None)
Quarter: 2012Q1

REPORT INFORMATION
  Report Type: 
  Country: None (occurrence: None)
  Receive Date: 20120117
  Receipt Date: 20120109
  Transmission Date: 20120608
  Serious: Yes (Other)
  Sender: FDA-Public Use
  Company Number: US-BAYER-2011-089964

PATIENT
  Age: 20 Year
  Sex: Female
  Weight: 68.027 kg

DRUGS (1)
  1. YASMIN [Suspect]
     Dosage: UNK
     Dates: start: 20070101, end: 20080601

REACTIONS (9)
  - PSYCHOLOGICAL TRAUMA [None]
  - INJURY [None]
  - FEAR [None]
  - OVARIAN CYST [None]
  - ANXIETY [None]
  - GALLBLADDER DISORDER [None]
  - ABDOMINAL PAIN UPPER [None]
  - EMOTIONAL DISTRESS [None]
  - PAIN [None]
